FAERS Safety Report 23555895 (Version 1)
Quarter: 2024Q1

REPORT INFORMATION
  Report Type: Report from Study
  Country: MX (occurrence: MX)
  Receive Date: 20240222
  Receipt Date: 20240222
  Transmission Date: 20240409
  Serious: Yes (Hospitalization, Other)
  Sender: FDA-Public Use
  Company Number: MX-ABBVIE-5648462

PATIENT
  Age: 59 Year
  Sex: Female

DRUGS (2)
  1. UPADACITINIB [Suspect]
     Active Substance: UPADACITINIB
     Indication: Rheumatoid arthritis
     Dosage: 15 MILLIGRAM
     Route: 048
     Dates: start: 2023
  2. UPADACITINIB [Suspect]
     Active Substance: UPADACITINIB
     Indication: Rheumatoid arthritis
     Dosage: 15 MILLIGRAM/LAST ADMIN DATE: 2023
     Route: 048
     Dates: start: 20230615

REACTIONS (3)
  - Spinal fracture [Unknown]
  - Gait inability [Unknown]
  - Sciatica [Unknown]

NARRATIVE: CASE EVENT DATE: 20231101
